FAERS Safety Report 11356910 (Version 1)
Quarter: 2015Q3

REPORT INFORMATION
  Report Type: Spontaneous
  Country: US (occurrence: US)
  Receive Date: 20150803
  Receipt Date: 20150803
  Transmission Date: 20151125
  Serious: No
  Sender: FDA-Public Use
  Company Number: US-ELI_LILLY_AND_COMPANY-US201303001316

PATIENT
  Age: 8 Year
  Sex: Male

DRUGS (3)
  1. STRATTERA [Suspect]
     Active Substance: ATOMOXETINE HYDROCHLORIDE
     Indication: ATTENTION DEFICIT/HYPERACTIVITY DISORDER
     Dosage: 40 MG, QD
  2. STRATTERA [Suspect]
     Active Substance: ATOMOXETINE HYDROCHLORIDE
     Dosage: 30 MG, QD
  3. KLONOPIN [Concomitant]
     Active Substance: CLONAZEPAM
     Dosage: 1 DF, EACH EVENING

REACTIONS (2)
  - Emotional disorder [Not Recovered/Not Resolved]
  - Abdominal discomfort [Recovered/Resolved]
